FAERS Safety Report 4293008-0 (Version None)
Quarter: 2004Q1

REPORT INFORMATION
  Report Type: 
  Country: None (occurrence: None)
  Receive Date: 20040212
  Receipt Date: 20030811
  Transmission Date: 20041129
  Serious: No
  Sender: FDA-Public Use
  Company Number: US-GLAXOSMITHKLINE-A0420598A

PATIENT
  Sex: Female

DRUGS (1)
  1. PAXIL [Suspect]
     Indication: EPSTEIN-BARR VIRUS INFECTION
     Dosage: 5MG PER DAY
     Route: 048
     Dates: end: 20030808

REACTIONS (2)
  - MENTAL IMPAIRMENT [None]
  - PARAESTHESIA [None]
